FAERS Safety Report 4892545-5 (Version None)
Quarter: 2005Q4

REPORT INFORMATION
  Report Type: 
  Country: None (occurrence: None)
  Receive Date: 20051220
  Receipt Date: 20051102
  Transmission Date: 20060501
  Serious: Yes (Other)
  Sender: FDA-Public Use
  Company Number: 423602

PATIENT
  Age: 67 Year
  Sex: Female

DRUGS (7)
  1. BONIVA [Suspect]
     Indication: OSTEOPOROSIS
     Dosage: ORAL
     Route: 048
     Dates: start: 20051030
  2. ACTONEL (RISIDRONATE SODIUM) [Concomitant]
  3. FOSAMAX [Concomitant]
  4. ZOLOFT [Concomitant]
  5. ELAVIL [Concomitant]
  6. ZOCOR [Concomitant]
  7. ZETIA [Concomitant]

REACTIONS (2)
  - BACK PAIN [None]
  - PAIN IN EXTREMITY [None]
